FAERS Safety Report 12012304 (Version 2)
Quarter: 2016Q2

REPORT INFORMATION
  Report Type: Report from Study
  Country: US (occurrence: US)
  Receive Date: 20160205
  Receipt Date: 20160406
  Transmission Date: 20160815
  Serious: Yes (Hospitalization, Other)
  Sender: FDA-Public Use
  Company Number: US-ABBVIE-16K-163-1548777-00

PATIENT
  Age: 55 Year
  Sex: Male
  Weight: 45.4 kg

DRUGS (7)
  1. HUMIRA [Suspect]
     Active Substance: ADALIMUMAB
     Dosage: FOUR WEEKS AFTER 160 MG DOSE
     Route: 058
     Dates: start: 2013, end: 201601
  2. HUMIRA [Suspect]
     Active Substance: ADALIMUMAB
     Route: 058
     Dates: start: 201601, end: 201601
  3. METHOTREXATE [Suspect]
     Active Substance: METHOTREXATE
     Indication: INTESTINAL OBSTRUCTION
  4. HUMIRA [Suspect]
     Active Substance: ADALIMUMAB
     Indication: CROHN^S DISEASE
     Dosage: LOADING DOSE
     Route: 058
     Dates: start: 2013, end: 2013
  5. METHOTREXATE [Suspect]
     Active Substance: METHOTREXATE
     Indication: ABDOMINAL PAIN
     Route: 058
     Dates: start: 201601, end: 201601
  6. HUMIRA [Suspect]
     Active Substance: ADALIMUMAB
     Dosage: LOADING DOSE, 2 WEEKS AFTER 160 MG DOSE
     Route: 058
     Dates: start: 2013, end: 2013
  7. FOLIC ACID. [Concomitant]
     Active Substance: FOLIC ACID
     Indication: PRODUCT USED FOR UNKNOWN INDICATION

REACTIONS (15)
  - Fistula [Recovering/Resolving]
  - Crohn^s disease [Recovering/Resolving]
  - Bone marrow failure [Not Recovered/Not Resolved]
  - Wound drainage [Recovered/Resolved]
  - Abdominal pain [Recovering/Resolving]
  - Wound [Recovering/Resolving]
  - Abdominal abscess [Recovering/Resolving]
  - Intestinal obstruction [Recovering/Resolving]
  - Abdominal pain [Unknown]
  - Blood iron decreased [Not Recovered/Not Resolved]
  - Intestinal obstruction [Recovered/Resolved]
  - Gastrointestinal oedema [Unknown]
  - Intestinal stenosis [Recovering/Resolving]
  - Remission not achieved [Not Recovered/Not Resolved]
  - Intestinal obstruction [Recovered/Resolved]

NARRATIVE: CASE EVENT DATE: 2013
